APPROVED DRUG PRODUCT: DUODOTE
Active Ingredient: ATROPINE; PRALIDOXIME CHLORIDE
Strength: 2.1MG/0.7ML;600MG/2ML
Dosage Form/Route: INJECTABLE;INTRAMUSCULAR
Application: N021983 | Product #001
Applicant: MERIDIAN MEDICAL TECHNOLOGIES LLC
Approved: Sep 28, 2006 | RLD: Yes | RS: Yes | Type: RX